FAERS Safety Report 22855889 (Version 4)
Quarter: 2024Q4

REPORT INFORMATION
  Report Type: Report from Study
  Country: CA (occurrence: CA)
  Receive Date: 20230823
  Receipt Date: 20241217
  Transmission Date: 20250114
  Serious: Yes (Hospitalization, Other)
  Sender: PFIZER
  Company Number: CA-PFIZER INC-202300281548

PATIENT
  Sex: Male

DRUGS (15)
  1. METHOTREXATE SODIUM [Suspect]
     Active Substance: METHOTREXATE SODIUM
     Dosage: UNK
  2. HUMIRA [Suspect]
     Active Substance: ADALIMUMAB
     Indication: Uveitis
     Dosage: UNK
  3. HUMIRA [Suspect]
     Active Substance: ADALIMUMAB
     Dosage: UNK
     Route: 058
  4. HUMIRA [Suspect]
     Active Substance: ADALIMUMAB
     Dosage: 40 MG
     Route: 058
  5. HUMIRA [Suspect]
     Active Substance: ADALIMUMAB
     Dosage: UNK
     Route: 058
  6. HUMIRA [Suspect]
     Active Substance: ADALIMUMAB
     Dosage: 40 MG 1 EVERY 2 WEEKS
     Route: 058
  7. HUMIRA [Suspect]
     Active Substance: ADALIMUMAB
     Indication: Uveitis
     Dosage: 40 MG 1 EVERY 2 WEEKS
  8. HULIO [Suspect]
     Active Substance: ADALIMUMAB-FKJP
     Indication: Uveitis
     Dosage: UNK
     Route: 058
  9. HULIO [Suspect]
     Active Substance: ADALIMUMAB-FKJP
     Dosage: UNK
  10. HULIO [Suspect]
     Active Substance: ADALIMUMAB-FKJP
     Dosage: UNK, 1 EVERY 2 WEEKS
     Route: 058
  11. HULIO [Suspect]
     Active Substance: ADALIMUMAB-FKJP
     Dosage: UNK, 1 EVERY 2 WEEKS
     Route: 058
  12. HULIO [Suspect]
     Active Substance: ADALIMUMAB-FKJP
     Dosage: UNK, 1 EVERY 2 WEEKS
     Route: 058
  13. HULIO [Suspect]
     Active Substance: ADALIMUMAB-FKJP
     Dosage: UNK, 1 EVERY 2 WEEKS
     Route: 065
  14. HULIO [Suspect]
     Active Substance: ADALIMUMAB-FKJP
     Dosage: UNK
     Route: 065
  15. HULIO [Suspect]
     Active Substance: ADALIMUMAB-FKJP
     Indication: Uveitis
     Dosage: UNK, 1 EVERY 2 WEEKS
     Route: 065

REACTIONS (11)
  - Product storage error [Unknown]
  - Depression [Unknown]
  - Nasopharyngitis [Unknown]
  - Viral infection [Unknown]
  - Therapy interrupted [Unknown]
  - Treatment noncompliance [Unknown]
  - Uveitis [Unknown]
  - Device leakage [Unknown]
  - Product administered at inappropriate site [Unknown]
  - Product packaging issue [Unknown]
  - Circumstance or information capable of leading to medication error [Unknown]
